FAERS Safety Report 16938757 (Version 4)
Quarter: 2022Q1

REPORT INFORMATION
  Report Type: Report from Study
  Country: US (occurrence: US)
  Receive Date: 20191020
  Receipt Date: 20220214
  Transmission Date: 20220424
  Serious: No
  Sender: FDA-Public Use
  Company Number: None

PATIENT
  Age: 2 Year
  Sex: Male
  Weight: 7 kg

DRUGS (1)
  1. ZOLGENSMA [Suspect]
     Active Substance: ONASEMNOGENE ABEPARVOVEC-XIOI
     Indication: Spinal muscular atrophy
     Dosage: 8.3 MG, ONCE/SINGLE (1.1 X 10 TO THE 14TH VECTOR GENOMES (VG) PER KG OF BODY WEIGHT)
     Route: 042
     Dates: start: 20191006

REACTIONS (2)
  - Muscular weakness [Unknown]
  - Vomiting [Unknown]

NARRATIVE: CASE EVENT DATE: 20191006
